FAERS Safety Report 7731757-X (Version None)
Quarter: 2011Q3

REPORT INFORMATION
  Report Type: 
  Country: None (occurrence: None)
  Receive Date: 20110906
  Receipt Date: 20110829
  Transmission Date: 20111222
  Serious: Yes (Hospitalization)
  Sender: FDA-Public Use
  Company Number: PHHY2011FR77439

PATIENT
  Age: 33 Year
  Sex: Male

DRUGS (6)
  1. VOLTAREN [Suspect]
     Indication: SCIATICA
     Dosage: 1 DF, QD
     Route: 048
     Dates: start: 20110710, end: 20110717
  2. ACETAMINOPHEN [Suspect]
     Indication: SCIATICA
     Dosage: 1 DF, TID
     Dates: start: 20110710, end: 20110714
  3. MIOREL [Suspect]
     Indication: SCIATICA
     Dosage: UNK UKN, UNK
     Route: 048
     Dates: start: 20110710, end: 20110717
  4. ACETAMINOPHEN [Suspect]
     Indication: SCIATICA
     Dosage: 1 DF, TID
     Dates: start: 20110710, end: 20110717
  5. ESCITALOPRAM [Suspect]
     Dosage: 20 MG, DAILY
     Route: 048
     Dates: start: 20110610, end: 20110714
  6. ESCITALOPRAM [Suspect]
     Indication: DEPRESSION
     Dosage: 5 MG, UNK
     Route: 048

REACTIONS (2)
  - SPINAL HAEMATOMA [None]
  - VOMITING [None]
